FAERS Safety Report 8536711-6 (Version None)
Quarter: 2012Q3

REPORT INFORMATION
  Report Type: 
  Country: None (occurrence: None)
  Receive Date: 20120725
  Receipt Date: 20120717
  Transmission Date: 20120928
  Serious: Yes (Other)
  Sender: FDA-Public Use
  Company Number: US-BAYER-2012-057206

PATIENT
  Age: 28 Year
  Sex: Female
  Weight: 126 kg

DRUGS (3)
  1. MIRENA [Suspect]
     Indication: ENDOMETRIOSIS
  2. LISINOPRIL [Concomitant]
     Indication: HYPERTENSION
     Dosage: 25 MG, UNK
  3. MIRENA [Suspect]
     Indication: CONTRACEPTION
     Dosage: UNK
     Route: 015
     Dates: start: 20120228, end: 20120607

REACTIONS (4)
  - DISCOMFORT [None]
  - ABDOMINAL PAIN [None]
  - DYSMENORRHOEA [None]
  - DEVICE DISLOCATION [None]
